FAERS Safety Report 9363639 (Version 1)
Quarter: 2013Q2

REPORT INFORMATION
  Report Type: Spontaneous
  Country: FI (occurrence: None)
  Receive Date: 20130618
  Receipt Date: 20130618
  Transmission Date: 20140414
  Serious: Yes (Other)
  Sender: FDA-Public Use
  Company Number: FK01302032

PATIENT
  Age: 14 Year
  Sex: Male

DRUGS (3)
  1. DEFEROXAMINE MESYLATE [Suspect]
     Indication: PRODUCT USED FOR UNKNOWN INDICATION
     Dosage: MG, PER DAY: OVER 8-12 HOUR ON 5-7 NIGHTS/WK, INTRAVENOUS (NOT OTHERWISE SPECIFIED)
     Route: 042
  2. DEFERASIROX (DEFERASIROX) [Concomitant]
  3. DEFERIPRONE (DEFERIPRINE) [Concomitant]

REACTIONS (1)
  - Cholestasis [None]
